FAERS Safety Report 8821876 (Version 1)
Quarter: 2012Q4

REPORT INFORMATION
  Report Type: 
  Country: US (occurrence: US)
  Receive Date: 20121002
  Receipt Date: 20121002
  Transmission Date: 20130627
  Serious: Yes (Hospitalization)
  Sender: FDA-Public Use
  Company Number: US-MERCK-1210USA000405

PATIENT

DRUGS (1)
  1. JANUVIA [Suspect]
     Dosage: 100 mg, bid
     Route: 048

REACTIONS (9)
  - Dyspnoea exertional [Unknown]
  - Decreased appetite [Unknown]
  - Fall [Unknown]
  - Abdominal pain upper [Unknown]
  - Sepsis [Unknown]
  - Blood creatinine increased [Unknown]
  - Liver function test abnormal [Unknown]
  - Blood urea increased [Unknown]
  - Asthenia [Unknown]
